FAERS Safety Report 12687450 (Version 1)
Quarter: 2016Q3

REPORT INFORMATION
  Report Type: Spontaneous
  Country: US (occurrence: US)
  Receive Date: 20160825
  Receipt Date: 20160825
  Transmission Date: 20161109
  Serious: No
  Sender: FDA-Public Use
  Company Number: US-009507513-1607USA006861

PATIENT
  Age: 34 Year
  Sex: Female
  Weight: 77.1 kg

DRUGS (1)
  1. NUVARING [Suspect]
     Active Substance: ETHINYL ESTRADIOL\ETONOGESTREL
     Indication: CONTRACEPTION
     Dosage: 5 WEEKS IN, NO BREAK
     Route: 067
     Dates: start: 2015

REACTIONS (5)
  - Menorrhagia [Unknown]
  - Breast feeding [Unknown]
  - Nausea [Unknown]
  - Headache [Unknown]
  - Lactation disorder [Unknown]

NARRATIVE: CASE EVENT DATE: 2015
